FAERS Safety Report 7022267-6 (Version None)
Quarter: 2010Q3

REPORT INFORMATION
  Report Type: 
  Country: None (occurrence: None)
  Receive Date: 20100930
  Receipt Date: 20100923
  Transmission Date: 20110219
  Serious: Yes (Death)
  Sender: FDA-Public Use
  Company Number: US-BAXTER-2010BH021846

PATIENT
  Sex: Male

DRUGS (2)
  1. DIANEAL [Suspect]
     Indication: PERITONEAL DIALYSIS
     Route: 033
     Dates: start: 20091208, end: 20100807
  2. DIANEAL [Suspect]
     Indication: PERITONEAL DIALYSIS
     Dates: start: 20091208, end: 20100807

REACTIONS (1)
  - CARDIAC FAILURE [None]
